FAERS Safety Report 8190732-4 (Version None)
Quarter: 2012Q1

REPORT INFORMATION
  Report Type: 
  Country: None (occurrence: None)
  Receive Date: 20120307
  Receipt Date: 20120228
  Transmission Date: 20120608
  Serious: Yes (Hospitalization)
  Sender: FDA-Public Use
  Company Number: GB-ROCHE-1008104

PATIENT
  Age: 41 Year
  Sex: Male
  Weight: 92.2 kg

DRUGS (15)
  1. SENNA [Concomitant]
  2. VEMURAFENIB [Suspect]
     Indication: METASTATIC MALIGNANT MELANOMA
     Dosage: 240MG TABLET
     Route: 048
     Dates: start: 20111026
  3. MORPHINE SULFATE [Concomitant]
     Dates: start: 20110905
  4. ENOXAPARIN [Concomitant]
     Dates: start: 20120213
  5. AMOXICILLIN AND CLAVULANATE POTASSIUM [Concomitant]
     Dates: start: 20111028
  6. ENOXAPARIN [Concomitant]
     Dates: start: 20111027, end: 20111031
  7. VEMURAFENIB [Suspect]
     Route: 048
     Dates: start: 20120118, end: 20120213
  8. ATORVASTAN [Concomitant]
     Dates: start: 20110401
  9. DIAZEPAM [Concomitant]
     Dates: start: 20110406
  10. AMLODIPINE [Concomitant]
     Dates: start: 20110401
  11. LOSARTAN POTASSIUM [Concomitant]
     Dates: start: 20110401
  12. AMOXICILLIN AND CLAVULANATE POTASSIUM [Concomitant]
     Dates: start: 20111027, end: 20111027
  13. SIMVASTATIN [Concomitant]
     Dates: start: 20110401
  14. MOVIPREP [Concomitant]
     Dates: start: 20111027
  15. ACETAMINOPHEN [Concomitant]
     Dates: start: 20111030

REACTIONS (3)
  - PLEURAL EFFUSION [None]
  - DYSPNOEA [None]
  - HAEMOPTYSIS [None]
